FAERS Safety Report 23172368 (Version 2)
Quarter: 2023Q4

REPORT INFORMATION
  Report Type: Spontaneous
  Country: US (occurrence: US)
  Receive Date: 20231110
  Receipt Date: 20231124
  Transmission Date: 20240110
  Serious: No
  Sender: FDA-Public Use
  Company Number: US-CYCLE PHARMACEUTICALS LTD-2023-CYC-000096

PATIENT

DRUGS (2)
  1. NITYR [Suspect]
     Active Substance: NITISINONE
     Indication: Tyrosinaemia
     Dosage: 2 MG, QD, 2 MG TABLET IN 10 ML OF WATER AND TAKE 7.5 ML  OF THE SOLUTION FOR A TOTAL DOSAGE OF 1.5 M
     Route: 065
  2. NITYR [Suspect]
     Active Substance: NITISINONE
     Indication: Amino acid metabolism disorder

REACTIONS (2)
  - Appetite disorder [Unknown]
  - Off label use [Unknown]
